FAERS Safety Report 8199468-7 (Version None)
Quarter: 2012Q1

REPORT INFORMATION
  Report Type: 
  Country: None (occurrence: None)
  Receive Date: 20120309
  Receipt Date: 20120306
  Transmission Date: 20120608
  Serious: Yes (Other)
  Sender: FDA-Public Use
  Company Number: US-AMGEN-USASP2012015076

PATIENT
  Age: 87 Year
  Sex: Female

DRUGS (7)
  1. PROLIA [Suspect]
     Indication: OSTEOPOROSIS POSTMENOPAUSAL
     Dates: start: 20110907
  2. DIURETICS [Concomitant]
  3. POTASSIUM [Concomitant]
  4. VITAMIN D [Concomitant]
  5. MAGNESIUM [Concomitant]
  6. ZYRTEC [Concomitant]
  7. CALCIUM [Concomitant]

REACTIONS (4)
  - TEMPORAL ARTERITIS [None]
  - TONGUE DISORDER [None]
  - PHARYNGEAL DISORDER [None]
  - SINUSITIS [None]
